FAERS Safety Report 8112189-1 (Version None)
Quarter: 2012Q1

REPORT INFORMATION
  Report Type: 
  Country: None (occurrence: None)
  Receive Date: 20120203
  Receipt Date: 20120130
  Transmission Date: 20120608
  Serious: Yes (Death, Hospitalization)
  Sender: FDA-Public Use
  Company Number: BE-B.I. PHARMACEUTICALS,INC./RIDGEFIELD-2012-BL-00048BL

PATIENT
  Sex: Female
  Weight: 61 kg

DRUGS (1)
  1. PRADAXA [Suspect]
     Indication: ATRIAL FIBRILLATION
     Dosage: 220 MG
     Route: 048
     Dates: start: 20120116, end: 20120124

REACTIONS (4)
  - LOWER GASTROINTESTINAL HAEMORRHAGE [None]
  - DEHYDRATION [None]
  - BLOOD CREATININE DECREASED [None]
  - HYPOVOLAEMIC SHOCK [None]
